FAERS Safety Report 11748088 (Version 1)
Quarter: 2015Q4

REPORT INFORMATION
  Report Type: Spontaneous
  Country: US (occurrence: US)
  Receive Date: 20151117
  Receipt Date: 20151117
  Transmission Date: 20160304
  Serious: No
  Sender: FDA-Public Use
  Company Number: US-GLAXOSMITHKLINE-US2015162580

PATIENT
  Age: 75 Year
  Sex: Female

DRUGS (1)
  1. ALLI [Suspect]
     Active Substance: ORLISTAT
     Indication: WEIGHT LOSS DIET
     Dosage: UNK
     Dates: start: 201503

REACTIONS (6)
  - Treatment noncompliance [Unknown]
  - Feeling abnormal [Unknown]
  - Diarrhoea [Unknown]
  - Muscle spasms [Unknown]
  - Drug ineffective [Unknown]
  - Incorrect dose administered [Unknown]
